FAERS Safety Report 20730491 (Version 1)
Quarter: 2022Q2

REPORT INFORMATION
  Report Type: Spontaneous
  Country: US (occurrence: None)
  Receive Date: 20220419
  Receipt Date: 20220419
  Transmission Date: 20220720
  Serious: Yes (unspecified)
  Sender: FDA-Public Use
  Company Number: None

PATIENT
  Sex: Male

DRUGS (1)
  1. OXCARBAZEPINE [Suspect]
     Active Substance: OXCARBAZEPINE

REACTIONS (6)
  - Gait disturbance [None]
  - Thinking abnormal [None]
  - Somnolence [None]
  - Diarrhoea [None]
  - Speech disorder [None]
  - Pollakiuria [None]

NARRATIVE: CASE EVENT DATE: 20220401
